FAERS Safety Report 19572660 (Version 1)
Quarter: 2021Q3

REPORT INFORMATION
  Report Type: Report from Study
  Country: AT (occurrence: AT)
  Receive Date: 20210716
  Receipt Date: 20210716
  Transmission Date: 20211014
  Serious: Yes (Hospitalization)
  Sender: FDA-Public Use
  Company Number: AT-PFIZER INC-2021793748

PATIENT

DRUGS (22)
  1. MYCOSTATIN [Concomitant]
     Active Substance: NYSTATIN
     Indication: MUCOSAL INFLAMMATION
     Dosage: ONGOING = NOT CHECKED
     Dates: start: 20190615, end: 20190819
  2. PACLITAXEL. [Suspect]
     Active Substance: PACLITAXEL
     Indication: BREAST CANCER
     Dosage: 113.69 MG, EVERY WEEK
     Route: 042
     Dates: start: 20180810, end: 20180914
  3. LETROZOLE. [Suspect]
     Active Substance: LETROZOLE
     Indication: BREAST CANCER
     Dosage: 2.5 MG (QD)
     Route: 048
     Dates: start: 20181029, end: 20190613
  4. KYTRIL [Concomitant]
     Active Substance: GRANISETRON HYDROCHLORIDE
     Dates: start: 20180928, end: 20181019
  5. ENTEROBENE [Concomitant]
     Dates: start: 20181127
  6. PARKEMED [Concomitant]
     Active Substance: MEFENAMIC ACID
     Dosage: ONGOING = NOT CHECKED
     Dates: start: 20190615
  7. TEMESTA [LORAZEPAM] [Concomitant]
     Active Substance: LORAZEPAM
     Dosage: ONGOING = CHECKED
  8. ANTIFLAT [Concomitant]
     Dosage: UNK
     Dates: start: 20181126
  9. XGEVA [Concomitant]
     Active Substance: DENOSUMAB
     Dosage: UNK
     Dates: start: 20180817
  10. PARKEMED [Concomitant]
     Active Substance: MEFENAMIC ACID
     Dates: start: 20181019
  11. CAPHOSOL [CALCIUM CHLORIDE;SODIUM CHLORIDE;SODIUM PHOSPHATE DIBASIC;SO [Concomitant]
     Indication: MUCOSAL INFLAMMATION
     Dosage: ONGOING = NOT CHECKED.
     Dates: start: 20180615, end: 20180921
  12. AMLODIBENE [Concomitant]
     Active Substance: AMLODIPINE BESYLATE
     Indication: HYPERTENSION
     Dosage: ONGOING = NOT CHECKED
     Dates: start: 20180810, end: 20190615
  13. NAB?PACLITAXEL [Suspect]
     Active Substance: PACLITAXEL
     Indication: BREAST CANCER
     Dosage: 142.11 MG, WEEKLY
     Route: 042
     Dates: start: 20180928
  14. ENTEROBENE [Concomitant]
     Indication: DIARRHOEA
     Dates: start: 20181012, end: 20181116
  15. VITAMINS WITH MINERALS [Concomitant]
     Active Substance: MINERALS\VITAMINS
     Dosage: UNK
     Dates: start: 20180817, end: 20190615
  16. TRASTUZUMAB. [Suspect]
     Active Substance: TRASTUZUMAB
     Indication: HER2 POSITIVE BREAST CANCER
     Dosage: 384 MG (384 MG, EVERY 3 WEEKS (MOST RECENT DOSE PRIOR TO THE EVENT: 09/NOV/2018)
     Route: 042
     Dates: start: 20180810, end: 20180810
  17. NAB?PACLITAXEL [Suspect]
     Active Substance: PACLITAXEL
     Dosage: 142.11 MG, WEEKLY (142.11 MG, EVERY WEEK (MOST RECENT DOSE PRIOR TO THE EVENT: 19/OCT/2018) )
     Route: 042
     Dates: start: 20181005
  18. CLAVERSAL [Concomitant]
     Active Substance: MESALAMINE
     Dosage: ONGOING = CHECKED
  19. ZOFRAN [Concomitant]
     Active Substance: ONDANSETRON HYDROCHLORIDE
     Indication: NAUSEA
     Dates: start: 20180907
  20. PERTUZUMAB. [Suspect]
     Active Substance: PERTUZUMAB
     Indication: BREAST CANCER
     Dosage: 840 MG, EVERY 3 WEEKS ((DOSAGE TEXT: MOST RECENT DOSE PRIOR TO THE EVENT: 31/AUG/2018)   )
     Route: 042
     Dates: start: 20180810, end: 20180810
  21. PARKEMED [Concomitant]
     Active Substance: MEFENAMIC ACID
     Indication: ARTHRALGIA
     Dates: start: 20180914
  22. TRITTICO [Concomitant]
     Active Substance: TRAZODONE HYDROCHLORIDE

REACTIONS (2)
  - Gastroenteritis radiation [Recovered/Resolved]
  - Abdominal pain upper [Not Recovered/Not Resolved]

NARRATIVE: CASE EVENT DATE: 20181109
